FAERS Safety Report 10708599 (Version 2)
Quarter: 2015Q2

REPORT INFORMATION
  Report Type: Report from Study
  Country: JP (occurrence: JP)
  Receive Date: 20150113
  Receipt Date: 20150526
  Transmission Date: 20150821
  Serious: Yes (Hospitalization)
  Sender: FDA-Public Use
  Company Number: JP-ASTRAZENECA-2015SE01708

PATIENT
  Age: 71 Year
  Sex: Male

DRUGS (35)
  1. METGLUCO [Concomitant]
     Active Substance: METFORMIN HYDROCHLORIDE
     Indication: DIABETES MELLITUS
     Dosage: NUMBER OF SEPARATE DOSAGES UNKNOWN
     Route: 065
     Dates: start: 20140606, end: 20141004
  2. GLIMEPIRIDE OD [Concomitant]
     Indication: DIABETES MELLITUS
     Dosage: NUMBER OF SEPARATE DOSAGES UNKNOWN
     Route: 065
     Dates: start: 20141005
  3. MAINHEART [Concomitant]
     Active Substance: BISOPROLOL FUMARATE
     Indication: HYPERTENSION
     Dosage: NUMBER OF SEPARATE DOSAGES UNKNOWN
     Route: 065
     Dates: start: 20120827, end: 20140509
  4. BISOPROLOL FUMARATE. [Concomitant]
     Active Substance: BISOPROLOL FUMARATE
     Indication: HYPERTENSION
     Dosage: NUMBER OF SEPARATE DOSAGES UNKNOWN
     Route: 065
     Dates: start: 20140510, end: 20141208
  5. AMARYL [Concomitant]
     Active Substance: GLIMEPIRIDE
     Indication: DIABETES MELLITUS
     Dosage: NUMBER OF SEPARATE DOSAGES UNKNOWN
     Route: 065
     Dates: start: 20140606, end: 20141004
  6. EQUA [Concomitant]
     Active Substance: VILDAGLIPTIN
     Indication: DIABETES MELLITUS
     Dosage: NUMBER OF SEPARATE DOSAGES UNKNOWN
     Route: 065
     Dates: start: 20140117
  7. ALLELOCK [Concomitant]
     Active Substance: OLOPATADINE HYDROCHLORIDE
     Dosage: NUMBER OF SEPARATE DOSAGES UNKNOWN
     Route: 065
     Dates: start: 20140924, end: 20140930
  8. MUCODYNE [Concomitant]
     Active Substance: CARBOCYSTEINE
     Dosage: NUMBER OF SEPARATE DOSAGES UNKNOWN
     Route: 065
     Dates: start: 20140924, end: 20140930
  9. CRESTOR [Suspect]
     Active Substance: ROSUVASTATIN CALCIUM
     Indication: HYPERCHOLESTEROLAEMIA
     Route: 048
     Dates: start: 20131220, end: 20140213
  10. METGLUCO [Concomitant]
     Active Substance: METFORMIN HYDROCHLORIDE
     Indication: DIABETES MELLITUS
     Dosage: NUMBER OF SEPARATE DOSAGES UNKNOWN
     Route: 065
     Dates: start: 20120907, end: 20140410
  11. NEUZYM [Concomitant]
     Active Substance: LYSOZYME HYDROCHLORIDE
     Dosage: NUMBER OF SEPARATE DOSAGES UNKNOWN
     Route: 048
     Dates: start: 20140204, end: 20140307
  12. MARSTHINE [Concomitant]
     Dosage: NUMBER OF SEPARATE DOSAGES UNKNOWN
     Route: 048
     Dates: start: 20140204, end: 20140207
  13. CRESTOR [Suspect]
     Active Substance: ROSUVASTATIN CALCIUM
     Indication: HYPERCHOLESTEROLAEMIA
     Route: 048
     Dates: start: 20120723, end: 20130823
  14. CRESTOR [Suspect]
     Active Substance: ROSUVASTATIN CALCIUM
     Indication: HYPERCHOLESTEROLAEMIA
     Route: 048
     Dates: start: 20140411
  15. SEIBULE [Concomitant]
     Active Substance: MIGLITOL
     Indication: DIABETES MELLITUS
     Dosage: NUMBER OF SEPARATE DOSAGES UNKNOWN
     Route: 065
     Dates: start: 20110325, end: 20140116
  16. AMARYL [Concomitant]
     Active Substance: GLIMEPIRIDE
     Indication: DIABETES MELLITUS
     Dosage: NUMBER OF SEPARATE DOSAGES UNKNOWN
     Route: 065
     Dates: start: 20120723, end: 20140116
  17. MARSTHINE [Concomitant]
     Dosage: NUMBER OF SEPARATE DOSAGES UNKNOWN
     Route: 048
     Dates: start: 20141114, end: 20141117
  18. BAYASPIRIN [Concomitant]
     Active Substance: ASPIRIN
     Dosage: NUMBER OF SEPARATE DOSAGES UNKNOWN
     Route: 065
     Dates: start: 20141002, end: 20141002
  19. CRESTOR [Suspect]
     Active Substance: ROSUVASTATIN CALCIUM
     Indication: HYPERCHOLESTEROLAEMIA
     Route: 048
     Dates: start: 20140214, end: 20140410
  20. METGLUCO [Concomitant]
     Active Substance: METFORMIN HYDROCHLORIDE
     Indication: DIABETES MELLITUS
     Dosage: NUMBER OF SEPARATE DOSAGES UNKNOWN
     Route: 065
     Dates: start: 20141209
  21. MICARDIS [Concomitant]
     Active Substance: TELMISARTAN
     Indication: HYPERTENSION
     Dosage: NUMBER OF SEPARATE DOSAGES UNKNOWN
     Route: 065
     Dates: start: 20120723
  22. MAINTATE [Concomitant]
     Active Substance: BISOPROLOL FUMARATE
     Indication: HYPERTENSION
     Dosage: NUMBER OF SEPARATE DOSAGES UNKNOWN
     Route: 065
     Dates: start: 20141209
  23. TSUMURA KAKKONTO EXTRACT GRANULES FOR ETHICAL USE [Concomitant]
     Dosage: NUMBER OF SEPARATE DOSAGES UNKNOWN
     Route: 048
     Dates: start: 20141114, end: 20141117
  24. METGLUCO [Concomitant]
     Active Substance: METFORMIN HYDROCHLORIDE
     Indication: DIABETES MELLITUS
     Dosage: NUMBER OF SEPARATE DOSAGES UNKNOWN
     Route: 065
     Dates: start: 20140411, end: 20140605
  25. FLAVERIC [Concomitant]
     Active Substance: BENPROPERINE PHOSPHATE
     Dosage: NUMBER OF SEPARATE DOSAGES UNKNOWN
     Route: 065
     Dates: start: 20140204, end: 20140207
  26. TRANSAMIN [Concomitant]
     Active Substance: TRANEXAMIC ACID
     Dosage: NUMBER OF SEPARATE DOSAGES UNKNOWN
     Route: 048
     Dates: start: 20140924, end: 20140930
  27. CRESTOR [Suspect]
     Active Substance: ROSUVASTATIN CALCIUM
     Indication: HYPERCHOLESTEROLAEMIA
     Dosage: DOSE INCREASED
     Route: 048
     Dates: start: 20130824, end: 20131219
  28. FLEX [Concomitant]
     Dosage: OPTIMAL DOSE
     Route: 062
     Dates: start: 2012
  29. PRAZAXA [Concomitant]
     Active Substance: DABIGATRAN ETEXILATE MESYLATE
     Dosage: NUMBER OF SEPARATE DOSAGES UNKNOWN
     Route: 065
     Dates: start: 20121120, end: 20141006
  30. MAGNESIUM OXIDE. [Concomitant]
     Active Substance: MAGNESIUM OXIDE
     Dosage: 0-2 G/DAY
     Route: 065
     Dates: start: 20140411
  31. ELIQUIS [Concomitant]
     Active Substance: APIXABAN
     Dosage: NUMBER OF SEPARATE DOSAGES UNKNOWN
     Route: 065
     Dates: start: 20141007
  32. AMARYL [Concomitant]
     Active Substance: GLIMEPIRIDE
     Indication: DIABETES MELLITUS
     Dosage: NUMBER OF SEPARATE DOSAGES UNKNOWN
     Route: 065
     Dates: start: 20140117, end: 20140605
  33. NEUZYM [Concomitant]
     Active Substance: LYSOZYME HYDROCHLORIDE
     Dosage: NUMBER OF SEPARATE DOSAGES UNKNOWN
     Route: 048
     Dates: start: 20141114, end: 20141117
  34. ASTHPHYLLIN [Concomitant]
     Dosage: NUMBER OF SEPARATE DOSAGES UNKNOWN
     Route: 048
     Dates: start: 20140924, end: 20140930
  35. LANSOPRAZOLE OD [Concomitant]
     Active Substance: LANSOPRAZOLE
     Dosage: NUMBER OF SEPARATE DOSAGES UNKNOWN
     Route: 065
     Dates: start: 20141002

REACTIONS (1)
  - Cerebral infarction [Recovered/Resolved]

NARRATIVE: CASE EVENT DATE: 20141001
